FAERS Safety Report 6938001-1 (Version None)
Quarter: 2010Q3

REPORT INFORMATION
  Report Type: 
  Country: None (occurrence: None)
  Receive Date: 20100824
  Receipt Date: 20100812
  Transmission Date: 20110219
  Serious: No
  Sender: FDA-Public Use
  Company Number: 2008BI029150

PATIENT
  Age: 55 Year
  Sex: Male

DRUGS (3)
  1. TYSABRI [Suspect]
     Indication: MULTIPLE SCLEROSIS
     Route: 042
     Dates: start: 20061102, end: 20080123
  2. TYSABRI [Suspect]
     Route: 042
     Dates: start: 20080220, end: 20090710
  3. TYSABRI [Suspect]
     Route: 042
     Dates: start: 20100514

REACTIONS (4)
  - FATIGUE [None]
  - GAIT DISTURBANCE [None]
  - NASOPHARYNGITIS [None]
  - STRESS [None]
